FAERS Safety Report 5703093-4 (Version None)
Quarter: 2008Q2

REPORT INFORMATION
  Report Type: 
  Country: None (occurrence: None)
  Receive Date: 20080411
  Receipt Date: 20080401
  Transmission Date: 20081010
  Serious: Yes (Death)
  Sender: FDA-Public Use
  Company Number: MX-ROCHE-556505

PATIENT
  Sex: Female
  Weight: 56.2 kg

DRUGS (4)
  1. METHOXY POLYETHYLENE GLYCOL-EPOETIN BETA [Suspect]
     Dosage: FREQUENCY REPORTED AS TTW.
     Route: 058
  2. TELMISARTAN [Concomitant]
     Dates: start: 20050811
  3. CALCIUM CARBONATE [Concomitant]
     Dates: start: 20050819
  4. HEPARIN [Concomitant]
     Dates: start: 20030614

REACTIONS (1)
  - DEATH [None]
